FAERS Safety Report 9960815 (Version 2)
Quarter: 2014Q1

REPORT INFORMATION
  Report Type: Spontaneous
  Country: US (occurrence: None)
  Receive Date: 20140228
  Receipt Date: 20140304
  Transmission Date: 20141002
  Serious: Yes (Life-Threatening, Other)
  Sender: FDA-Public Use
  Company Number: 2202109

PATIENT
  Age: 20 Year
  Sex: Female
  Weight: 95 kg

DRUGS (6)
  1. KETAMINE HYDROCHLORIDE INJECTION USP [Suspect]
     Indication: SEDATION
     Route: 042
     Dates: start: 20140214, end: 20140214
  2. MIDAZOLAM [Suspect]
     Indication: SEDATION
     Route: 042
     Dates: start: 20140214, end: 20140214
  3. FENTANYL [Suspect]
     Indication: SEDATION
     Route: 042
     Dates: start: 20140214, end: 20140214
  4. DECADRON [Concomitant]
  5. PROPOFOL [Concomitant]
  6. ROBINUL [Concomitant]

REACTIONS (4)
  - Respiratory arrest [None]
  - Sudden onset of sleep [None]
  - Apnoea [None]
  - Tachycardia [None]
